FAERS Safety Report 23130421 (Version 3)
Quarter: 2023Q4

REPORT INFORMATION
  Report Type: Report from Study
  Country: JP (occurrence: JP)
  Receive Date: 20231031
  Receipt Date: 20231116
  Transmission Date: 20240110
  Serious: Yes (Death, Life-Threatening, Hospitalization, Other)
  Sender: FDA-Public Use
  Company Number: JP-PFIZER INC-PV202300179175

PATIENT
  Age: 53 Year
  Sex: Female
  Weight: 45.2 kg

DRUGS (2)
  1. MEROPENEM [Suspect]
     Active Substance: MEROPENEM
     Indication: Septic shock
     Dosage: UNK
     Route: 041
  2. DORIPENEM MONOHYDRATE [Suspect]
     Active Substance: DORIPENEM MONOHYDRATE
     Indication: Septic shock
     Dosage: UNK
     Route: 041

REACTIONS (2)
  - Toxic epidermal necrolysis [Fatal]
  - Multiple organ dysfunction syndrome [Fatal]
